FAERS Safety Report 8470562-6 (Version None)
Quarter: 2012Q2

REPORT INFORMATION
  Report Type: 
  Country: None (occurrence: None)
  Receive Date: 20120627
  Receipt Date: 20120622
  Transmission Date: 20120825
  Serious: Yes (Death)
  Sender: FDA-Public Use
  Company Number: PHHY2012DK054654

PATIENT

DRUGS (1)
  1. VOLTAREN [Suspect]

REACTIONS (2)
  - EMBOLISM [None]
  - CARDIAC ARREST [None]
